FAERS Safety Report 19396962 (Version 1)
Quarter: 2021Q2

REPORT INFORMATION
  Report Type: Report from Study
  Country: CA (occurrence: CA)
  Receive Date: 20210609
  Receipt Date: 20210609
  Transmission Date: 20210717
  Serious: Yes (Death, Hospitalization)
  Sender: FDA-Public Use
  Company Number: CA-EMD SERONO-9242505

PATIENT
  Age: 89 Year
  Sex: Male

DRUGS (1)
  1. BAVENCIO [Suspect]
     Active Substance: AVELUMAB
     Indication: PRODUCT USED FOR UNKNOWN INDICATION
     Route: 042
     Dates: start: 20210407, end: 20210510

REACTIONS (4)
  - Death [Fatal]
  - Hepatitis [Unknown]
  - Myocarditis [Unknown]
  - Myositis [Unknown]

NARRATIVE: CASE EVENT DATE: 20210521
